FAERS Safety Report 9847215 (Version 1)
Quarter: 2014Q1

REPORT INFORMATION
  Report Type: Spontaneous
  Country: FR (occurrence: FR)
  Receive Date: 20140127
  Receipt Date: 20140127
  Transmission Date: 20141002
  Serious: Yes (Hospitalization, Other)
  Sender: FDA-Public Use
  Company Number: FR-PFIZER INC-2014018086

PATIENT
  Age: 66 Year
  Sex: Male

DRUGS (12)
  1. VANCOMYCINE [Suspect]
     Indication: STAPHYLOCOCCAL SEPSIS
     Dosage: 500 MG, 2X/DAY
     Route: 042
     Dates: start: 20090823, end: 20090911
  2. TAZOCILLINE [Suspect]
     Indication: STAPHYLOCOCCAL SEPSIS
     Dosage: 4 G, 4X/DAY
     Route: 042
     Dates: start: 20090827, end: 20090911
  3. CELLCEPT [Suspect]
     Indication: LIVER TRANSPLANT
     Dosage: 750 MG, 1X/DAY
     Route: 048
     Dates: start: 1999, end: 20090911
  4. CYMEVAN [Suspect]
     Dosage: 150 MG, 2X/DAY
     Route: 042
     Dates: start: 20090827, end: 20090903
  5. TIENAM [Suspect]
     Indication: STAPHYLOCOCCAL SEPSIS
     Dosage: 500 MG, 2X/DAY
     Dates: start: 20090827, end: 20090903
  6. AMIKACIN [Suspect]
     Dosage: 1 G, 1X/DAY
     Dates: start: 20090823, end: 20090928
  7. VFEND [Concomitant]
     Dosage: UNK
  8. PROGRAF [Concomitant]
     Dosage: UNK
  9. MOPRAL [Concomitant]
     Dosage: UNK
  10. LASILIX [Concomitant]
     Dosage: UNK
  11. PERFALGAN [Concomitant]
     Dosage: UNK
  12. INSULIN [Concomitant]
     Dosage: UNK

REACTIONS (1)
  - Pancytopenia [Recovered/Resolved]
